FAERS Safety Report 7046341-3 (Version None)
Quarter: 2010Q4

REPORT INFORMATION
  Report Type: 
  Country: None (occurrence: None)
  Receive Date: 20101014
  Receipt Date: 20101012
  Transmission Date: 20110411
  Serious: Yes (Hospitalization)
  Sender: FDA-Public Use
  Company Number: CHPA2010GB15980

PATIENT
  Age: 68 Year
  Sex: Female

DRUGS (8)
  1. IBUPROFEN (NGX) [Suspect]
     Indication: POSTOPERATIVE ANALGESIA
     Dosage: 600 MG, QD
     Route: 048
     Dates: start: 20101003, end: 20101003
  2. RIVAROXABAN [Suspect]
     Indication: THROMBOSIS PROPHYLAXIS
     Dosage: 10 MG, QD
     Route: 048
     Dates: start: 20101002, end: 20101003
  3. ASPIRIN [Suspect]
     Indication: CARDIOVASCULAR DISORDER
     Dosage: 75 MG, QD
     Route: 048
     Dates: end: 20101003
  4. ATENOLOL [Concomitant]
     Dosage: UNK, UNK
     Route: 065
  5. ACETAMINOPHEN AND CODEINE PHOSPHATE [Concomitant]
     Dosage: UNK, UNK
     Route: 065
  6. LEVOTHYROXINE SODIUM [Concomitant]
     Dosage: UNK, UNK
     Route: 065
  7. MIRTAZAPINE [Concomitant]
     Dosage: UNK, UNK
     Route: 065
  8. RAMIPRIL [Concomitant]
     Dosage: UNK, UNK
     Route: 065

REACTIONS (2)
  - HYPOTENSION [None]
  - OESOPHAGITIS HAEMORRHAGIC [None]
